FAERS Safety Report 5576601-4 (Version None)
Quarter: 2007Q4

REPORT INFORMATION
  Report Type: 
  Country: None (occurrence: None)
  Receive Date: 20071228
  Receipt Date: 20071221
  Transmission Date: 20080405
  Serious: Yes (Hospitalization)
  Sender: FDA-Public Use
  Company Number: PHHO2007JP15500

PATIENT
  Age: 41 Year
  Sex: Female
  Weight: 48 kg

DRUGS (5)
  1. CLOZAPINE [Suspect]
     Indication: SCHIZOPHRENIA
     Route: 048
     Dates: start: 20061018, end: 20070815
  2. CLOZAPINE [Suspect]
     Dosage: 600 MG/DAY
     Route: 048
     Dates: start: 20070816
  3. LORAZEPAM [Suspect]
     Indication: SCHIZOPHRENIA
     Route: 048
     Dates: start: 20070511
  4. GLYSENNID [Concomitant]
  5. SELTOUCH [Concomitant]

REACTIONS (7)
  - ASTERIXIS [None]
  - DISEASE PROGRESSION [None]
  - DISORIENTATION [None]
  - DYSARTHRIA [None]
  - GAIT DISTURBANCE [None]
  - HALLUCINATION, AUDITORY [None]
  - SUICIDAL IDEATION [None]
